FAERS Safety Report 13858167 (Version 1)
Quarter: 2017Q3

REPORT INFORMATION
  Report Type: Spontaneous
  Country: US (occurrence: US)
  Receive Date: 20170811
  Receipt Date: 20170811
  Transmission Date: 20171127
  Serious: No
  Sender: FDA-Public Use
  Company Number: US-IPCA LABORATORIES LIMITED-IPC201503-000180

PATIENT

DRUGS (1)
  1. HYDROXYCHLOROQUINE SULFATE TABLETS, USP [Suspect]
     Active Substance: HYDROXYCHLOROQUINE SULFATE
     Dosage: UNK,UNK,UNK

REACTIONS (3)
  - Muscle spasms [Unknown]
  - Dysuria [Unknown]
  - Pruritus [Unknown]
